FAERS Safety Report 17372818 (Version 4)
Quarter: 2020Q2

REPORT INFORMATION
  Report Type: Spontaneous
  Country: CA (occurrence: CA)
  Receive Date: 20200205
  Receipt Date: 20200524
  Transmission Date: 20200713
  Serious: Yes (Other)
  Sender: FDA-Public Use
  Company Number: CA-CELLTRION INC.-2017CA015329

PATIENT

DRUGS (16)
  1. INFLECTRA [Suspect]
     Active Substance: INFLIXIMAB-DYYB
     Dosage: 5 MG/KG (ROUNDED TO NEAREST VIAL), Q 0, 2, 6, THEN EVERY 8 WEEKS
     Route: 042
     Dates: start: 20190613
  2. INFLECTRA [Suspect]
     Active Substance: INFLIXIMAB-DYYB
     Dosage: 5 MG/KG (ROUNDED TO NEAREST VIAL), Q 0, 2, 6, THEN EVERY 8 WEEKS
     Route: 042
     Dates: start: 20190808
  3. INFLECTRA [Suspect]
     Active Substance: INFLIXIMAB-DYYB
     Dosage: 5 MG/KG (ROUNDED TO NEAREST VIAL), Q 0, 2, 6, THEN EVERY 8 WEEKS
     Route: 042
     Dates: start: 20200519
  4. PREDNISONE. [Concomitant]
     Active Substance: PREDNISONE
     Dosage: UNK (DECREASING DOSES)
     Route: 065
  5. INFLECTRA [Suspect]
     Active Substance: INFLIXIMAB-DYYB
     Indication: CROHN^S DISEASE
     Dosage: 5 MG/KG (ROUNDED TO NEAREST VIAL), Q 0, 2, 6, THEN EVERY 8 WEEKS
     Route: 042
     Dates: start: 20171019
  6. INFLECTRA [Suspect]
     Active Substance: INFLIXIMAB-DYYB
     Dosage: 5 MG/KG (ROUNDED TO NEAREST VIAL), Q 0, 2, 6, THEN EVERY 8 WEEKS
     Route: 042
     Dates: start: 20180713
  7. INFLECTRA [Suspect]
     Active Substance: INFLIXIMAB-DYYB
     Dosage: 5 MG/KG (ROUNDED TO NEAREST VIAL), Q 0, 2, 6, THEN EVERY 8 WEEKS
     Route: 042
     Dates: start: 20180907
  8. INFLECTRA [Suspect]
     Active Substance: INFLIXIMAB-DYYB
     Dosage: 5 MG/KG (ROUNDED TO NEAREST VIAL), Q 0, 2, 6, THEN EVERY 8 WEEKS
     Route: 042
     Dates: start: 20190222
  9. INFLECTRA [Suspect]
     Active Substance: INFLIXIMAB-DYYB
     Dosage: 5 MG/KG (ROUNDED TO NEAREST VIAL), Q 0, 2, 6, THEN EVERY 8 WEEKS
     Route: 042
     Dates: start: 20190417
  10. INFLECTRA [Suspect]
     Active Substance: INFLIXIMAB-DYYB
     Dosage: 5 MG/KG (ROUNDED TO NEAREST VIAL), Q 0, 2, 6, THEN EVERY 8 WEEKS
     Route: 042
     Dates: start: 20191129
  11. INFLECTRA [Suspect]
     Active Substance: INFLIXIMAB-DYYB
     Dosage: 5 MG/KG (ROUNDED TO NEAREST VIAL), Q 0, 2, 6, THEN EVERY 8 WEEKS
     Route: 042
     Dates: start: 20200323
  12. METHOTREXATE. [Concomitant]
     Active Substance: METHOTREXATE
     Indication: POLYMYALGIA RHEUMATICA
     Dosage: 17.5 MG, WEEKLY
     Route: 048
  13. INFLECTRA [Suspect]
     Active Substance: INFLIXIMAB-DYYB
     Dosage: 5 MG/KG (ROUNDED TO NEAREST VIAL), Q 0, 2, 6, THEN EVERY 8 WEEKS
     Route: 042
     Dates: start: 20191129
  14. INFLECTRA [Suspect]
     Active Substance: INFLIXIMAB-DYYB
     Dosage: 5 MG/KG (ROUNDED TO NEAREST VIAL), Q 0, 2, 6, THEN EVERY 8 WEEKS
     Route: 042
     Dates: start: 20181102
  15. INFLECTRA [Suspect]
     Active Substance: INFLIXIMAB-DYYB
     Dosage: 5 MG/KG (ROUNDED TO NEAREST VIAL), Q 0, 2, 6, THEN EVERY 8 WEEKS
     Route: 042
     Dates: start: 20181228
  16. INFLECTRA [Suspect]
     Active Substance: INFLIXIMAB-DYYB
     Dosage: 5 MG/KG (ROUNDED TO NEAREST VIAL), Q 0, 2, 6, THEN EVERY 8 WEEKS
     Route: 042
     Dates: start: 20200127, end: 20200127

REACTIONS (8)
  - Arthralgia [Not Recovered/Not Resolved]
  - Hypertension [Not Recovered/Not Resolved]
  - Condition aggravated [Not Recovered/Not Resolved]
  - Abdominal pain [Unknown]
  - Abdominal discomfort [Not Recovered/Not Resolved]
  - Heart rate irregular [Unknown]
  - Uveitis [Unknown]
  - Blood pressure fluctuation [Not Recovered/Not Resolved]

NARRATIVE: CASE EVENT DATE: 20171019
